FAERS Safety Report 8145058-1 (Version None)
Quarter: 2012Q1

REPORT INFORMATION
  Report Type: 
  Country: None (occurrence: None)
  Receive Date: 20120103
  Receipt Date: 20111014
  Transmission Date: 20120608
  Serious: No
  Sender: FDA-Public Use
  Company Number: AE-2011-002353

PATIENT
  Age: 54 Year
  Sex: Male
  Weight: 92.9874 kg

DRUGS (4)
  1. LISINOPRIL [Concomitant]
  2. PEGASYS [Concomitant]
  3. INCIVEK [Suspect]
     Dosage: 2250 MG (750 MG, 1 IN 8 HR)
     Dates: start: 20111010
  4. RIBAVIRIN [Concomitant]

REACTIONS (2)
  - ANAL PRURITUS [None]
  - HAEMORRHOIDS [None]
